FAERS Safety Report 13821269 (Version 1)
Quarter: 2017Q3

REPORT INFORMATION
  Report Type: Spontaneous
  Country: US (occurrence: US)
  Receive Date: 20170801
  Receipt Date: 20170801
  Transmission Date: 20171127
  Serious: No
  Sender: FDA-Public Use
  Company Number: US-BIOMARINAP-US-2017-114832

PATIENT
  Age: 43 Year
  Sex: Male
  Weight: 69.5 kg

DRUGS (1)
  1. KUVAN [Suspect]
     Active Substance: SAPROPTERIN DIHYDROCHLORIDE
     Indication: PHENYLKETONURIA
     Dosage: UNK, QD
     Route: 048
     Dates: start: 20170327

REACTIONS (6)
  - Confusional state [Unknown]
  - Anger [Recovered/Resolved]
  - Balance disorder [Recovered/Resolved]
  - Nervous system disorder [Recovered/Resolved]
  - Amnesia [Recovered/Resolved]
  - Visual impairment [Unknown]

NARRATIVE: CASE EVENT DATE: 20170715
